FAERS Safety Report 11063977 (Version 1)
Quarter: 2015Q2

REPORT INFORMATION
  Report Type: Spontaneous
  Country: FR (occurrence: FR)
  Receive Date: 20150424
  Receipt Date: 20150424
  Transmission Date: 20150821
  Serious: Yes (Hospitalization)
  Sender: FDA-Public Use
  Company Number: FR-PFIZER INC-2015131058

PATIENT
  Age: 86 Year
  Sex: Female
  Weight: 50 kg

DRUGS (3)
  1. SUTENT [Suspect]
     Active Substance: SUNITINIB MALATE
     Indication: GASTROINTESTINAL STROMAL TUMOUR
     Dosage: 37.5 MG, CDD
     Dates: start: 201305, end: 2013
  2. SUTENT [Suspect]
     Active Substance: SUNITINIB MALATE
     Dosage: 25 MG, CYCLIC (1 WEEK ON 2)
  3. SUTENT [Suspect]
     Active Substance: SUNITINIB MALATE
     Dosage: 25 MG, DAILY ( CDD)
     Dates: start: 201410

REACTIONS (9)
  - Hypertension [Unknown]
  - Diarrhoea [Recovered/Resolved]
  - Disease progression [Unknown]
  - Hepatocellular injury [Recovered/Resolved]
  - General physical health deterioration [Recovered/Resolved]
  - Gastrointestinal stromal tumour [Unknown]
  - Dyspepsia [Unknown]
  - Vomiting [Recovered/Resolved]
  - Thrombocytopenia [Recovered/Resolved]

NARRATIVE: CASE EVENT DATE: 201306
